FAERS Safety Report 5808844-6 (Version None)
Quarter: 2008Q3

REPORT INFORMATION
  Report Type: 
  Country: None (occurrence: None)
  Receive Date: 20080714
  Receipt Date: 20080701
  Transmission Date: 20090109
  Serious: Yes (Other)
  Sender: FDA-Public Use
  Company Number: US-ELI_LILLY_AND_COMPANY-US200806004436

PATIENT
  Sex: Male

DRUGS (6)
  1. CYMBALTA [Suspect]
     Indication: DEPRESSION
     Dosage: 1 D/F, UNK
     Dates: start: 20031001, end: 20070101
  2. XANAX [Concomitant]
     Indication: DEPRESSION
     Dosage: UNK, UNK
     Dates: start: 20031001, end: 20070101
  3. SEROQUEL [Concomitant]
     Indication: DEPRESSION
     Dosage: UNK, UNK
     Dates: start: 20031001, end: 20070101
  4. WELLBUTRIN [Concomitant]
     Indication: DEPRESSION
     Dosage: UNK, UNK
     Dates: start: 20031001, end: 20070101
  5. LEXAPRO [Concomitant]
     Indication: DEPRESSION
     Dosage: UNK, UNK
     Dates: start: 20031001, end: 20060101
  6. RESTORIL [Concomitant]
     Indication: DEPRESSION
     Dosage: UNK, UNK
     Dates: start: 20031001, end: 20070101

REACTIONS (29)
  - ACTIVITIES OF DAILY LIVING IMPAIRED [None]
  - ANXIETY [None]
  - BLOOD CHOLESTEROL ABNORMAL [None]
  - BLOOD PRESSURE INCREASED [None]
  - BLOOD TRIGLYCERIDES ABNORMAL [None]
  - BRUXISM [None]
  - CONVULSION [None]
  - DEPRESSION [None]
  - DRUG WITHDRAWAL SYNDROME [None]
  - DYSKINESIA [None]
  - EARLY MORNING AWAKENING [None]
  - EMOTIONAL DISTRESS [None]
  - FEELING ABNORMAL [None]
  - HALLUCINATION [None]
  - HEADACHE [None]
  - HYPERHIDROSIS [None]
  - INSOMNIA [None]
  - NIGHTMARE [None]
  - PAIN [None]
  - PALLOR [None]
  - RENAL FAILURE [None]
  - ROAD TRAFFIC ACCIDENT [None]
  - SLEEP APNOEA SYNDROME [None]
  - SUICIDAL IDEATION [None]
  - SUICIDE ATTEMPT [None]
  - TARDIVE DYSKINESIA [None]
  - THINKING ABNORMAL [None]
  - THYROID DISORDER [None]
  - WEIGHT DECREASED [None]
